FAERS Safety Report 4429623-0 (Version None)
Quarter: 2004Q3

REPORT INFORMATION
  Report Type: 
  Country: None (occurrence: None)
  Receive Date: 20040819
  Receipt Date: 20040119
  Transmission Date: 20050211
  Serious: Yes (Death, Other)
  Sender: FDA-Public Use
  Company Number: PHFR2004GB00615

PATIENT
  Age: 76 Year
  Sex: Male
  Weight: 90 kg

DRUGS (1)
  1. TERBINAFINE HCL [Suspect]
     Indication: BODY TINEA
     Dosage: 250MG/DAY
     Route: 048
     Dates: start: 20031201, end: 20031214

REACTIONS (7)
  - BLISTER [None]
  - DERMATITIS EXFOLIATIVE [None]
  - HEPATIC CIRRHOSIS [None]
  - PERICARDITIS [None]
  - RASH PUSTULAR [None]
  - SEPSIS [None]
  - STAPHYLOCOCCAL INFECTION [None]
